FAERS Safety Report 23927110 (Version 2)
Quarter: 2025Q3

REPORT INFORMATION
  Report Type: Spontaneous
  Country: US (occurrence: US)
  Receive Date: 20240531
  Receipt Date: 20250703
  Transmission Date: 20251021
  Serious: No
  Sender: RADIUS PHARM
  Company Number: US-RADIUS HEALTH INC.-2023US006675

PATIENT
  Age: 60 Year
  Sex: Female

DRUGS (2)
  1. TYMLOS [Suspect]
     Active Substance: ABALOPARATIDE
     Indication: Osteoporotic fracture
     Route: 058
     Dates: start: 20231129
  2. INSULIN NOS [Concomitant]
     Active Substance: INSULIN NOS
     Indication: Product used for unknown indication

REACTIONS (7)
  - Wrong technique in product usage process [Unknown]
  - Product dose omission in error [Unknown]
  - Scar [Unknown]
  - Influenza like illness [Unknown]
  - Therapeutic response unexpected [Unknown]
  - Diarrhoea [Recovered/Resolved]
  - Blood calcium increased [Unknown]

NARRATIVE: CASE EVENT DATE: 20241217
